FAERS Safety Report 9849433 (Version 2)
Quarter: 2014Q1

REPORT INFORMATION
  Report Type: Spontaneous
  Country: US (occurrence: US)
  Receive Date: 20140128
  Receipt Date: 20140129
  Transmission Date: 20141002
  Serious: Yes (Hospitalization)
  Sender: FDA-Public Use
  Company Number: US-B.I. PHARMACEUTICALS,INC./RIDGEFIELD-2014-BI-03266BP

PATIENT
  Sex: Male
  Weight: 110.2 kg

DRUGS (9)
  1. TRADJENTA [Suspect]
     Indication: TYPE 2 DIABETES MELLITUS
     Route: 048
     Dates: end: 201401
  2. PRAVASTATIN [Concomitant]
     Route: 065
  3. PLAVIX [Concomitant]
     Route: 065
  4. LOSARTAN [Concomitant]
     Route: 065
  5. HYDROCHLOROTHIAZIDE [Concomitant]
     Route: 065
  6. CLONIDINE [Concomitant]
     Route: 065
  7. NORVASC [Concomitant]
     Route: 065
  8. DOXAZOSIN [Concomitant]
     Route: 065
  9. FINASTERIDE [Concomitant]
     Route: 065

REACTIONS (1)
  - Pancreatitis acute [Recovered/Resolved]
